FAERS Safety Report 7561917-2 (Version None)
Quarter: 2011Q2

REPORT INFORMATION
  Report Type: 
  Country: None (occurrence: None)
  Receive Date: 20110621
  Receipt Date: 20110610
  Transmission Date: 20111010
  Serious: Yes (Hospitalization, Other)
  Sender: FDA-Public Use
  Company Number: US-ROCHE-765909

PATIENT
  Sex: Male
  Weight: 76.2 kg

DRUGS (4)
  1. ACCUTANE [Suspect]
     Dosage: DOSE: 80 MG QAM AND 40 MG QPM
     Route: 048
     Dates: start: 20011121, end: 20020206
  2. ACCUTANE [Suspect]
     Indication: ACNE
     Route: 048
     Dates: start: 20010901
  3. ACCUTANE [Suspect]
     Route: 048
     Dates: start: 20030601, end: 20030801
  4. ACCUTANE [Suspect]
     Route: 048
     Dates: start: 20020801, end: 20020901

REACTIONS (11)
  - INFLAMMATORY BOWEL DISEASE [None]
  - CELLULITIS [None]
  - ANXIETY [None]
  - INTESTINAL HAEMORRHAGE [None]
  - PYODERMA GANGRENOSUM [None]
  - CROHN'S DISEASE [None]
  - FISTULA [None]
  - INTESTINAL OBSTRUCTION [None]
  - STRESS [None]
  - COLITIS ULCERATIVE [None]
  - ARTHRITIS ENTEROPATHIC [None]
